FAERS Safety Report 24640090 (Version 2)
Quarter: 2025Q3

REPORT INFORMATION
  Report Type: Report from Study
  Country: US (occurrence: US)
  Receive Date: 20241120
  Receipt Date: 20250809
  Transmission Date: 20251020
  Serious: Yes (Hospitalization, Other)
  Sender: ALEXION PHARMACEUTICALS
  Company Number: US-ASTRAZENECA-202411USA009071US

PATIENT
  Sex: Male

DRUGS (1)
  1. OSIMERTINIB [Suspect]
     Active Substance: OSIMERTINIB
     Indication: Lung carcinoma cell type unspecified stage I
     Dosage: 160 MILLIGRAM, QD
     Dates: start: 202404

REACTIONS (3)
  - Haematemesis [Unknown]
  - Pneumonia [Unknown]
  - Renal impairment [Recovering/Resolving]
